FAERS Safety Report 8764845 (Version 1)
Quarter: 2012Q4

REPORT INFORMATION
  Report Type: 
  Country: US (occurrence: US)
  Receive Date: 20120901
  Receipt Date: 20120901
  Transmission Date: 20130627
  Serious: No
  Sender: FDA-Public Use
  Company Number: US-009507513-1208USA010747

PATIENT

DRUGS (3)
  1. IMPLANON [Suspect]
     Indication: CONTRACEPTION
     Dosage: UNK
     Route: 059
     Dates: start: 20120711
  2. ZOLOFT [Concomitant]
  3. IRON (UNSPECIFIED) [Concomitant]

REACTIONS (1)
  - Pruritus [Recovering/Resolving]
